FAERS Safety Report 26207831 (Version 1)
Quarter: 2025Q4

REPORT INFORMATION
  Report Type: Spontaneous
  Country: US (occurrence: None)
  Receive Date: 20251226
  Receipt Date: 20251226
  Transmission Date: 20260117
  Serious: Yes (Life-Threatening, Hospitalization)
  Sender: FDA-CTU
  Company Number: None

PATIENT
  Age: 77 Year
  Sex: Female
  Weight: 66.15 kg

DRUGS (15)
  1. TYRVAYA [Suspect]
     Active Substance: VARENICLINE TARTRATE
     Indication: Dry eye
     Dosage: FREQUENCY : TWICE A DAY;?OTHER ROUTE : SPRAY IN SIDE OF NOSE;
     Route: 050
     Dates: start: 20250909, end: 20251121
  2. BUDESONIDE [Concomitant]
     Active Substance: BUDESONIDE
  3. rosuvastatin 25 mg [Concomitant]
  4. VITAMIN D2 [Concomitant]
     Active Substance: ERGOCALCIFEROL
  5. ibersartan 300mg [Concomitant]
  6. nitrofurantioin [Concomitant]
  7. multinvitamin (shaklee) [Concomitant]
  8. MAGNESIUM [Concomitant]
     Active Substance: MAGNESIUM
  9. b12 [Concomitant]
  10. ALIGN [Concomitant]
     Active Substance: BIFIDOBACTERIUM LONGUM SUBSP. INFANTIS
  11. osteo matrix [Concomitant]
  12. TYLENOL [Concomitant]
     Active Substance: ACETAMINOPHEN
  13. FOLIC ACID [Concomitant]
     Active Substance: FOLIC ACID
  14. BIOTIN [Concomitant]
     Active Substance: BIOTIN
  15. HERBALS\TURMERIC [Concomitant]
     Active Substance: HERBALS\TURMERIC

REACTIONS (6)
  - Myocardial infarction [None]
  - Atrial fibrillation [None]
  - Pyrexia [None]
  - Weight decreased [None]
  - Feeling of body temperature change [None]
  - Therapy cessation [None]

NARRATIVE: CASE EVENT DATE: 20251120
